FAERS Safety Report 9108447 (Version 2)
Quarter: 2013Q2

REPORT INFORMATION
  Report Type: Spontaneous
  Country: US (occurrence: US)
  Receive Date: 20130222
  Receipt Date: 20130402
  Transmission Date: 20140414
  Serious: Yes (Other)
  Sender: FDA-Public Use
  Company Number: US-B.I. PHARMACEUTICALS,INC./RIDGEFIELD-2013-BI-04218BP

PATIENT
  Age: 74 Year
  Sex: Male
  Weight: 92.08 kg

DRUGS (2)
  1. PRADAXA [Suspect]
     Indication: ATRIAL FIBRILLATION
     Dosage: 300 MG
     Route: 048
     Dates: end: 201302
  2. PRADAXA [Suspect]
     Indication: PULMONARY EMBOLISM

REACTIONS (1)
  - Deep vein thrombosis [Not Recovered/Not Resolved]
